FAERS Safety Report 10213382 (Version 2)
Quarter: 2014Q2

REPORT INFORMATION
  Report Type: Spontaneous
  Country: US (occurrence: None)
  Receive Date: 20140529
  Receipt Date: 20140602
  Transmission Date: 20141212
  Serious: Yes (Death, Hospitalization)
  Sender: FDA-Public Use
  Company Number: 153196

PATIENT
  Age: 69 Year
  Sex: Female
  Weight: 47 kg

DRUGS (2)
  1. CYTARABINE [Suspect]
     Indication: ACUTE MYELOID LEUKAEMIA
     Dates: start: 20140512
  2. DAUNORUBICIN [Concomitant]

REACTIONS (8)
  - Pneumonia [None]
  - Septic shock [None]
  - Cardio-respiratory arrest [None]
  - Diarrhoea [None]
  - Metabolic acidosis [None]
  - Acute respiratory failure [None]
  - Pancytopenia [None]
  - Pulseless electrical activity [None]
